FAERS Safety Report 7190783-2 (Version None)
Quarter: 2010Q4

REPORT INFORMATION
  Report Type: 
  Country: None (occurrence: None)
  Receive Date: 20101213
  Receipt Date: 20101130
  Transmission Date: 20110411
  Serious: Yes (Congenital Anomaly)
  Sender: FDA-Public Use
  Company Number: 8039303

PATIENT
  Sex: Female

DRUGS (4)
  1. KEPPRA [Suspect]
     Indication: EPILEPSY
     Dosage: SEE IMAGE, TRANSPLACENTAL
     Route: 064
     Dates: start: 20070301, end: 20070321
  2. CITRACAL [Concomitant]
  3. FISH OIL [Concomitant]
  4. TYLENOL EXTRA STRENGTH [Concomitant]

REACTIONS (6)
  - DRUG EXPOSURE VIA BREAST MILK [None]
  - ECTOPIC KIDNEY [None]
  - MATERNAL DRUGS AFFECTING FOETUS [None]
  - OBSTRUCTION GASTRIC [None]
  - PATENT DUCTUS ARTERIOSUS [None]
  - PREMATURE BABY [None]
